FAERS Safety Report 6068494-6 (Version None)
Quarter: 2009Q1

REPORT INFORMATION
  Report Type: 
  Country: None (occurrence: None)
  Receive Date: 20090206
  Receipt Date: 20090127
  Transmission Date: 20090719
  Serious: Yes (Life-Threatening, Other)
  Sender: FDA-Public Use
  Company Number: CO-PFIZER INC-2009162512

PATIENT

DRUGS (1)
  1. LOPID [Suspect]
     Indication: BLOOD TRIGLYCERIDES INCREASED
     Dosage: 900 MG, 1X/DAY
     Route: 048
     Dates: start: 20080715, end: 20081128

REACTIONS (1)
  - CEREBROVASCULAR ACCIDENT [None]
